FAERS Safety Report 20351016 (Version 1)
Quarter: 2022Q1

REPORT INFORMATION
  Report Type: Spontaneous
  Country: US (occurrence: US)
  Receive Date: 20220119
  Receipt Date: 20220119
  Transmission Date: 20220424
  Serious: No
  Sender: FDA-Public Use
  Company Number: US-MYLANLABS-2022M1002428

PATIENT
  Sex: Female

DRUGS (2)
  1. SCOPOLAMINE [Suspect]
     Active Substance: SCOPOLAMINE
     Indication: Nausea
     Dosage: 1 MILLIGRAM, Q3D (CHANGES  2 PATCHES EVERY 72 HOURS)
     Route: 062
  2. SCOPOLAMINE [Suspect]
     Active Substance: SCOPOLAMINE
     Dosage: 1 MILLIGRAM, Q3D
     Route: 062

REACTIONS (3)
  - Nausea [Unknown]
  - Incorrect dose administered [Unknown]
  - Product adhesion issue [Unknown]
